FAERS Safety Report 8371862-0 (Version None)
Quarter: 2012Q2

REPORT INFORMATION
  Report Type: 
  Country: None (occurrence: None)
  Receive Date: 20120518
  Receipt Date: 20120517
  Transmission Date: 20120825
  Serious: Yes (Other)
  Sender: FDA-Public Use
  Company Number: CN-ROCHE-1069843

PATIENT
  Sex: Male

DRUGS (5)
  1. PREDNISONE [Concomitant]
     Indication: B-CELL SMALL LYMPHOCYTIC LYMPHOMA
     Route: 048
     Dates: start: 20100101, end: 20120218
  2. DOXORUBICIN HCL [Concomitant]
     Indication: B-CELL SMALL LYMPHOCYTIC LYMPHOMA
     Route: 041
     Dates: start: 20100101, end: 20120218
  3. CYCLOPHOSPHAMIDE [Concomitant]
     Indication: B-CELL SMALL LYMPHOCYTIC LYMPHOMA
     Route: 041
     Dates: start: 20100101, end: 20120218
  4. MABTHERA [Suspect]
     Indication: B-CELL SMALL LYMPHOCYTIC LYMPHOMA
     Route: 041
     Dates: start: 20100101, end: 20120218
  5. VINCRISTINE [Concomitant]
     Indication: B-CELL SMALL LYMPHOCYTIC LYMPHOMA
     Route: 041
     Dates: start: 20100101, end: 20120218

REACTIONS (2)
  - DRUG INEFFECTIVE [None]
  - LYMPHOMA [None]
